FAERS Safety Report 16024719 (Version 1)
Quarter: 2019Q1

REPORT INFORMATION
  Report Type: Spontaneous
  Country: FR (occurrence: FR)
  Receive Date: 20190301
  Receipt Date: 20190301
  Transmission Date: 20190418
  Serious: Yes (Other)
  Sender: FDA-Public Use
  Company Number: FR-GUERBET-T201401197

PATIENT
  Age: 54 Year
  Sex: Male

DRUGS (3)
  1. OPTIJECT 350 [Suspect]
     Active Substance: IOVERSOL
     Indication: CARDIAC IMAGING PROCEDURE
     Dosage: 116 ML, SINGLE
     Route: 042
     Dates: start: 20140121, end: 20140121
  2. ATACAND [Concomitant]
     Active Substance: CANDESARTAN CILEXETIL
     Indication: PRODUCT USED FOR UNKNOWN INDICATION
     Route: 065
  3. BETADINE [Concomitant]
     Active Substance: POVIDONE-IODINE
     Indication: PRODUCT USED FOR UNKNOWN INDICATION
     Route: 065

REACTIONS (1)
  - Anaphylactoid reaction [Recovered/Resolved]

NARRATIVE: CASE EVENT DATE: 20140121
